FAERS Safety Report 9796534 (Version 1)
Quarter: 2014Q1

REPORT INFORMATION
  Report Type: Spontaneous
  Country: FR (occurrence: FR)
  Receive Date: 20140103
  Receipt Date: 20140103
  Transmission Date: 20141002
  Serious: Yes (Hospitalization, Other)
  Sender: FDA-Public Use
  Company Number: FR-PFIZER INC-2014001314

PATIENT
  Age: 79 Year
  Sex: Male

DRUGS (8)
  1. CORDARONE [Suspect]
     Dosage: UNK
     Route: 048
     Dates: start: 2004
  2. SIMVASTATIN [Suspect]
     Dosage: UNK
     Route: 048
     Dates: start: 2004
  3. LASILIX [Suspect]
     Dosage: 40 MG, DAILY
     Route: 048
     Dates: start: 2004
  4. XATRAL LP [Suspect]
     Dosage: 1 DF, DAILY
     Route: 048
     Dates: start: 2012
  5. STILNOX [Suspect]
     Dosage: UNK
  6. CARDENSIEL [Suspect]
     Dosage: 1.25 MG, DAILY
     Route: 048
     Dates: start: 2004
  7. PREVISCAN [Suspect]
     Dosage: UNK
     Route: 048
     Dates: start: 2004
  8. INEXIUM [Suspect]
     Dosage: UNK
     Dates: start: 2012

REACTIONS (4)
  - Retroperitoneal fibrosis [Not Recovered/Not Resolved]
  - Anuria [Not Recovered/Not Resolved]
  - Constipation [Not Recovered/Not Resolved]
  - Back pain [Not Recovered/Not Resolved]
